FAERS Safety Report 8862497 (Version 2)
Quarter: 2012Q4

REPORT INFORMATION
  Report Type: 
  Country: AU (occurrence: AU)
  Receive Date: 20121026
  Receipt Date: 20121114
  Transmission Date: 20130627
  Serious: Yes (Hospitalization, Other)
  Sender: FDA-Public Use
  Company Number: PHHY2012AU095567

PATIENT
  Age: 92 Year
  Sex: Female
  Weight: 53 kg

DRUGS (12)
  1. ACLASTA [Suspect]
     Dosage: 5 mg, UNK
     Route: 042
     Dates: start: 20111024
  2. ACLASTA [Suspect]
     Dosage: 5 mg, UNK
     Route: 042
     Dates: start: 20121023
  3. PANTOPRAZOLE [Concomitant]
     Dosage: 40 mg, BID
     Route: 048
  4. MAGNESIUM [Concomitant]
     Route: 042
  5. POTASSIUM [Concomitant]
  6. OLIVE LEAVES EXTRACT [Concomitant]
     Route: 048
  7. NOVASONE [Concomitant]
     Route: 048
  8. CHOLECALCIFEROL [Concomitant]
     Dosage: 1000 IU, QD
     Route: 065
  9. FISH OIL [Concomitant]
     Dosage: 1000 mg, QD
     Route: 048
  10. OXAZEPAM [Concomitant]
     Dosage: 7.5mg nocte prn
     Route: 048
  11. POLYETHYLENE GLYCOL W/PROPYLENE GLYCOL [Concomitant]
     Dosage: 1 drop prn mdu both eyes
  12. RAMIPRIL [Concomitant]
     Dosage: 2.5 mg mane
     Route: 048

REACTIONS (11)
  - Gastric ulcer [Recovered/Resolved]
  - Haematemesis [Recovered/Resolved]
  - Abdominal pain [Recovered/Resolved]
  - Accident [Unknown]
  - Sinus tachycardia [Unknown]
  - Osteoarthritis [Unknown]
  - Spinal osteoarthritis [Unknown]
  - Pubis fracture [Unknown]
  - Fracture nonunion [Unknown]
  - Blood sodium decreased [Unknown]
  - Glomerular filtration rate decreased [Unknown]
